FAERS Safety Report 9803324 (Version 1)
Quarter: 2014Q1

REPORT INFORMATION
  Report Type: Report from Study
  Country: BR (occurrence: BR)
  Receive Date: 20140108
  Receipt Date: 20140108
  Transmission Date: 20141002
  Serious: Yes (Other)
  Sender: FDA-Public Use
  Company Number: PHHY2014BR001610

PATIENT
  Sex: Male
  Weight: 86 kg

DRUGS (4)
  1. DIOVAN [Suspect]
     Indication: HYPERTENSION
     Dosage: 80 MG, QD IN THE MORNING
     Route: 048
  2. GLIBENCLAMIDE [Concomitant]
     Indication: DIABETES MELLITUS
     Dosage: 5 MG, UNK
     Dates: start: 1995
  3. EUTIROX [Concomitant]
     Indication: THYROID DISORDER
     Dosage: UNK UKN, UNK
  4. DIGOXINA [Concomitant]
     Indication: CARDIAC DISORDER
     Dosage: UNK UKN, UNK

REACTIONS (3)
  - Diabetes mellitus [Recovered/Resolved]
  - Urinary incontinence [Recovered/Resolved]
  - Renal disorder [Recovered/Resolved]
